FAERS Safety Report 16320244 (Version 1)
Quarter: 2019Q2

REPORT INFORMATION
  Report Type: Spontaneous
  Country: US (occurrence: US)
  Receive Date: 20190515
  Receipt Date: 20190515
  Transmission Date: 20190711
  Serious: Yes (Hospitalization)
  Sender: FDA-Public Use
  Company Number: None

PATIENT
  Sex: Female

DRUGS (3)
  1. PIOGLITAZONE, ATORVASTATIN, NEXIUM, HYDROXYCLOR [Concomitant]
  2. INSULIN SYRG MIS, LANTUS, VALSARTAN, PLAQUENL [Concomitant]
  3. BENLYSTA [Suspect]
     Active Substance: BELIMUMAB
     Indication: SYSTEMIC LUPUS ERYTHEMATOSUS
     Dosage: ?          OTHER FREQUENCY:ONCE A MONTH;?
     Route: 042
     Dates: start: 20170328

REACTIONS (1)
  - Hospitalisation [None]
